FAERS Safety Report 24583187 (Version 1)
Quarter: 2024Q4

REPORT INFORMATION
  Report Type: Report from Study
  Country: US (occurrence: US)
  Receive Date: 20241106
  Receipt Date: 20241106
  Transmission Date: 20250114
  Serious: Yes (Other)
  Sender: MIRUM PHARMACEUTICALS
  Company Number: US-MIRUM PHARMACEUTICALS, INC.-US-MIR-24-00759

PATIENT

DRUGS (8)
  1. LIVMARLI [Suspect]
     Active Substance: MARALIXIBAT CHLORIDE
     Indication: Alagille syndrome
     Dosage: 0.9 MILLILITER (8.55MG TOTAL), QD
     Route: 048
     Dates: start: 20240510
  2. LIVMARLI [Suspect]
     Active Substance: MARALIXIBAT CHLORIDE
     Dosage: UNK
     Route: 065
     Dates: start: 20230605
  3. LIVMARLI [Suspect]
     Active Substance: MARALIXIBAT CHLORIDE
     Dosage: 24 MILLILITER 30 DAYS ROUND
     Route: 065
  4. LIVMARLI [Suspect]
     Active Substance: MARALIXIBAT CHLORIDE
     Dosage: 22 MILLILITER 30 DAYS ROUND
     Route: 065
  5. CYPROHEPTADINE [Concomitant]
     Active Substance: CYPROHEPTADINE
     Indication: Product used for unknown indication
     Dosage: 2 MILLIGRAM, TID (MONDAY - FRIDAY)
     Route: 048
  6. VITAMIN D NOS [Concomitant]
     Active Substance: CHOLECALCIFEROL\ERGOCALCIFEROL
     Indication: Product used for unknown indication
     Dosage: 2000 INTERNATIONAL UNIT, QD
     Route: 048
  7. PEDIASURE COMPLETE [ASCORBIC ACID;BIOTIN;CALCIUM;CARBOHYDRATES NOS;CAR [Concomitant]
     Indication: Product used for unknown indication
     Dosage: 1 BOTTLE, BID
     Route: 065
  8. MVI [ASCORBIC ACID;DEXPANTHENOL;ERGOCALCIFEROL;NICOTINAMIDE;PYRIDOXINE [Concomitant]
     Indication: Product used for unknown indication
     Dosage: OTC
     Route: 065

REACTIONS (10)
  - Hepatic fibrosis [Unknown]
  - Cholangitis [Unknown]
  - Growth retardation [Unknown]
  - Pulmonary hypertension [Unknown]
  - Vitamin K deficiency [Unknown]
  - Inflammation [Unknown]
  - Pruritus [Unknown]
  - International normalised ratio increased [Unknown]
  - Drug ineffective [Unknown]
  - Prescribed underdose [Unknown]

NARRATIVE: CASE EVENT DATE: 20240101
